FAERS Safety Report 9657116 (Version 2)
Quarter: 2014Q1

REPORT INFORMATION
  Report Type: Spontaneous
  Country: IT (occurrence: IT)
  Receive Date: 20131030
  Receipt Date: 20140103
  Transmission Date: 20141002
  Serious: Yes (Other)
  Sender: FDA-Public Use
  Company Number: IT-PFIZER INC-2013308005

PATIENT
  Age: 75 Year
  Sex: Male

DRUGS (8)
  1. CARBOPLATINO PFIZER ITALIA [Suspect]
     Indication: LUNG NEOPLASM MALIGNANT
     Dosage: 400 MG/M2, CYCLIC
     Route: 042
     Dates: start: 20130301, end: 20130418
  2. GEMCITABINA SUN 200 MG POLVERE PER SOLUZIONE PER INFUSIONE [Suspect]
     Indication: LUNG NEOPLASM MALIGNANT
     Dosage: 1000 MG/M2, CYCLIC
     Route: 042
     Dates: start: 20130301
  3. ACETYLSALICYLIC ACID [Concomitant]
     Indication: THROMBOSIS PROPHYLAXIS
     Dosage: 100 MG, UNK
     Route: 048
     Dates: start: 20100101, end: 20130418
  4. BISOPROLOLO EG [Concomitant]
     Indication: CONGESTIVE CARDIOMYOPATHY
     Dosage: 1 DF, UNK
     Route: 048
     Dates: start: 20100101, end: 20130418
  5. LASIX [Concomitant]
     Indication: CONGESTIVE CARDIOMYOPATHY
     Dosage: 1 DF, UNK
     Route: 048
     Dates: start: 20100101, end: 20130418
  6. TRIATEC [Concomitant]
     Indication: CONGESTIVE CARDIOMYOPATHY
     Dosage: 1 DF, UNK
     Dates: start: 20100101, end: 20130418
  7. ZYLORIC [Concomitant]
     Dosage: 1 DF, UNK
     Route: 048
     Dates: start: 20120101, end: 20130418
  8. PRASTEROL [Concomitant]
     Dosage: 1 DF, UNK
     Route: 048

REACTIONS (2)
  - Renal failure [Recovering/Resolving]
  - Anaemia [Recovering/Resolving]
